FAERS Safety Report 7414119-4 (Version None)
Quarter: 2011Q1

REPORT INFORMATION
  Report Type: 
  Country: None (occurrence: None)
  Receive Date: 20110302
  Receipt Date: 20101116
  Transmission Date: 20110831
  Serious: No
  Sender: FDA-Public Use
  Company Number: 022180

PATIENT
  Sex: Female

DRUGS (15)
  1. CIMZIA [Suspect]
     Indication: CROHN'S DISEASE
     Dosage: 400 MG 1X/MONTH SUBCUTANEOUS
     Route: 058
     Dates: start: 20090107
  2. ONDANSETRON [Concomitant]
  3. ALPRAZOLAM [Concomitant]
  4. WELLBUTRIN [Concomitant]
  5. PROPAFEN [Concomitant]
  6. VENTOLIN [Concomitant]
  7. IBUPROFEN [Concomitant]
  8. ADVAIR HFA [Concomitant]
  9. TRAMADOL HCL [Concomitant]
  10. DEPAKOTE [Concomitant]
  11. AMBIEN [Concomitant]
  12. AZELASTINE HCL [Concomitant]
  13. MERCAPTOPURINE [Concomitant]
  14. NEXIUM [Concomitant]
  15. NASONEX [Concomitant]

REACTIONS (6)
  - INJECTION SITE REACTION [None]
  - VOMITING [None]
  - NAUSEA [None]
  - ABDOMINAL PAIN [None]
  - CROHN'S DISEASE [None]
  - CONSTIPATION [None]
